FAERS Safety Report 24583676 (Version 2)
Quarter: 2024Q4

REPORT INFORMATION
  Report Type: Spontaneous
  Country: CO (occurrence: CO)
  Receive Date: 20241106
  Receipt Date: 20241122
  Transmission Date: 20250114
  Serious: Yes (Other)
  Sender: SANOFI AVENTIS
  Company Number: CO-SA-2024SA313220

PATIENT
  Age: 43 Year
  Sex: Female

DRUGS (1)
  1. DUPILUMAB [Suspect]
     Active Substance: DUPILUMAB
     Indication: Dermatitis atopic
     Dosage: 300 MG, Q15D
     Route: 058
     Dates: start: 20240521

REACTIONS (6)
  - Abscess jaw [Not Recovered/Not Resolved]
  - Periostitis [Not Recovered/Not Resolved]
  - Oedema [Unknown]
  - Erythema [Unknown]
  - Pain [Unknown]
  - Skin plaque [Unknown]

NARRATIVE: CASE EVENT DATE: 20240101
